FAERS Safety Report 5704457-5 (Version None)
Quarter: 2008Q2

REPORT INFORMATION
  Report Type: 
  Country: None (occurrence: None)
  Receive Date: 20080409
  Receipt Date: 20080402
  Transmission Date: 20081010
  Serious: Yes (Other)
  Sender: FDA-Public Use
  Company Number: 2008SP002530

PATIENT
  Age: 48 Year
  Sex: Female
  Weight: 65 kg

DRUGS (2)
  1. DESLORATADINE [Suspect]
     Indication: CHOLECYSTECTOMY
     Dosage: 1 DF, QD;PO
     Route: 048
     Dates: start: 20080128, end: 20080130
  2. CONTRACEPTIVE PILL [Concomitant]

REACTIONS (4)
  - GASTROENTERITIS [None]
  - HEPATITIS [None]
  - LOSS OF CONSCIOUSNESS [None]
  - SELF-MEDICATION [None]
